FAERS Safety Report 15074145 (Version 2)
Quarter: 2018Q3

REPORT INFORMATION
  Report Type: Spontaneous
  Country: CR (occurrence: CR)
  Receive Date: 20180627
  Receipt Date: 20180712
  Transmission Date: 20181010
  Serious: Yes (Death, Other)
  Sender: FDA-Public Use
  Company Number: CR-BAYER-2018-120111

PATIENT
  Age: 74 Year
  Sex: Female

DRUGS (1)
  1. NEXAVAR [Suspect]
     Active Substance: SORAFENIB
     Dosage: 800 MG, QD
     Dates: start: 20180611

REACTIONS (3)
  - Death [Fatal]
  - Coma [None]
  - General physical health deterioration [None]

NARRATIVE: CASE EVENT DATE: 201806
